FAERS Safety Report 18970395 (Version 1)
Quarter: 2021Q1

REPORT INFORMATION
  Report Type: Report from Study
  Country: HK (occurrence: HK)
  Receive Date: 20210304
  Receipt Date: 20210304
  Transmission Date: 20210420
  Serious: Yes (Hospitalization)
  Sender: FDA-Public Use
  Company Number: HK-PFIZER INC-2021194915

PATIENT
  Age: 78 Year
  Sex: Female
  Weight: 64.5 kg

DRUGS (17)
  1. FAMOTIDINE. [Concomitant]
     Active Substance: FAMOTIDINE
     Indication: EPIGASTRIC DISCOMFORT
     Dosage: UNK
     Route: 048
     Dates: start: 20200529
  2. LIGNOCAINE [LIDOCAINE] [Concomitant]
     Active Substance: LIDOCAINE
     Indication: ANAL ULCER
     Dosage: UNK
     Route: 054
     Dates: start: 20210112
  3. AMLODIPINE [Concomitant]
     Active Substance: AMLODIPINE BESYLATE
     Indication: HYPERTENSION
     Dosage: UNK
     Route: 048
     Dates: start: 20120614
  4. AXITINIB [Suspect]
     Active Substance: AXITINIB
     Dosage: 5 MG, 2X/DAY
     Route: 048
     Dates: start: 20201112, end: 20201113
  5. AXITINIB [Suspect]
     Active Substance: AXITINIB
     Dosage: 2 MG, 2X/DAY
     Route: 048
     Dates: start: 20210201, end: 20210217
  6. ETORICOXIB. [Concomitant]
     Active Substance: ETORICOXIB
     Indication: PAIN
     Dosage: UNK
     Route: 048
     Dates: start: 20200709
  7. SUCRALFATE. [Concomitant]
     Active Substance: SUCRALFATE
     Indication: RECTAL HAEMORRHAGE
     Dosage: UNK
     Route: 054
     Dates: start: 20201221
  8. AXITINIB [Suspect]
     Active Substance: AXITINIB
     Indication: CERVIX CARCINOMA
     Dosage: 5 MG, 2X/DAY
     Route: 048
     Dates: start: 20201022, end: 20201103
  9. GABAPENTIN. [Concomitant]
     Active Substance: GABAPENTIN
     Indication: PAIN
     Dosage: UNK
     Route: 048
     Dates: start: 20201113
  10. DIPHENHYDRAMINE. [Concomitant]
     Active Substance: DIPHENHYDRAMINE
     Indication: PREMEDICATION
     Dosage: UNK
     Route: 042
     Dates: start: 20201022
  11. PARACETAMOL [Concomitant]
     Active Substance: ACETAMINOPHEN
     Indication: PREMEDICATION
     Dosage: UNK
     Route: 048
     Dates: start: 20201023
  12. ANUSOL [ATROPA BELLADONNA EXTRACT;BISMUTH TRIBROMOPHENATE;ZINC SULFATE [Concomitant]
     Indication: RECTAL HAEMORRHAGE
     Dosage: UNK
     Route: 054
     Dates: start: 20210209
  13. AVELUMAB [Suspect]
     Active Substance: AVELUMAB
     Indication: CERVIX CARCINOMA
     Dosage: 10 MG/KG, CYCLIC: EVERY 2 WEEKS (Q2W)
     Route: 042
     Dates: start: 20201022
  14. PARACETAMOL [Concomitant]
     Active Substance: ACETAMINOPHEN
     Indication: PAIN
     Dosage: UNK
     Route: 048
     Dates: start: 20201022
  15. AXITINIB [Suspect]
     Active Substance: AXITINIB
     Dosage: 3 MG, 2X/DAY
     Route: 048
     Dates: start: 20201119, end: 20201203
  16. AXITINIB [Suspect]
     Active Substance: AXITINIB
     Dosage: 2 MG, 2X/DAY
     Route: 048
     Dates: start: 20201216, end: 20210118
  17. SIMVASTATIN. [Concomitant]
     Active Substance: SIMVASTATIN
     Indication: HYPERLIPIDAEMIA
     Dosage: UNK
     Route: 048
     Dates: start: 20201028

REACTIONS (1)
  - Female genital tract fistula [Not Recovered/Not Resolved]

NARRATIVE: CASE EVENT DATE: 20210221
